FAERS Safety Report 5781672-6 (Version None)
Quarter: 2008Q2

REPORT INFORMATION
  Report Type: 
  Country: None (occurrence: None)
  Receive Date: 20080623
  Receipt Date: 20080609
  Transmission Date: 20081010
  Serious: Yes (Other)
  Sender: FDA-Public Use
  Company Number: US-BAYER-200812391BCC

PATIENT
  Age: 21 Year
  Sex: Female
  Weight: 107 kg

DRUGS (1)
  1. ASPIRIN [Suspect]
     Indication: MIGRAINE
     Route: 048
     Dates: start: 19780101, end: 19980101

REACTIONS (4)
  - ABDOMINAL PAIN UPPER [None]
  - DRUG EXPOSURE DURING PREGNANCY [None]
  - GASTRIC ULCER HAEMORRHAGE [None]
  - HAEMATEMESIS [None]
